FAERS Safety Report 8398985-4 (Version None)
Quarter: 2012Q2

REPORT INFORMATION
  Report Type: 
  Country: None (occurrence: None)
  Receive Date: 20120531
  Receipt Date: 20120528
  Transmission Date: 20120825
  Serious: Yes (Life-Threatening)
  Sender: FDA-Public Use
  Company Number: JP-EISAI INC-E2020-10846-CLI-JP

PATIENT
  Sex: Male

DRUGS (5)
  1. ARICEPT [Suspect]
     Route: 048
     Dates: start: 20110712, end: 20110914
  2. LOSARTAN POTASSIUM AND HYDROCHLOROTHIAZIDE [Concomitant]
     Route: 048
  3. ARICEPT [Suspect]
     Indication: DEMENTIA ALZHEIMER'S TYPE
     Route: 048
     Dates: start: 20110705, end: 20110711
  4. PROTECADIN [Concomitant]
     Dosage: 10 MG
     Route: 048
  5. FLIVASTATIN SODIUM [Concomitant]
     Dosage: 75 MG
     Route: 048

REACTIONS (1)
  - TONGUE NEOPLASM MALIGNANT STAGE UNSPECIFIED [None]
